FAERS Safety Report 19299161 (Version 1)
Quarter: 2021Q2

REPORT INFORMATION
  Report Type: Spontaneous
  Country: CA (occurrence: CA)
  Receive Date: 20210524
  Receipt Date: 20210524
  Transmission Date: 20210717
  Serious: Yes (Hospitalization)
  Sender: FDA-Public Use
  Company Number: CA-PFIZER INC-2021051020

PATIENT
  Age: 51 Year
  Sex: Female

DRUGS (1)
  1. BOSULIF [Suspect]
     Active Substance: BOSUTINIB MONOHYDRATE
     Dosage: 500 MG
     Route: 065
     Dates: start: 20210128

REACTIONS (8)
  - Feeling drunk [Unknown]
  - Illness [Unknown]
  - Dizziness [Unknown]
  - Gait disturbance [Unknown]
  - Somnolence [Unknown]
  - Malaise [Unknown]
  - Vomiting [Unknown]
  - Diarrhoea [Unknown]
